FAERS Safety Report 16389935 (Version 3)
Quarter: 2025Q2

REPORT INFORMATION
  Report Type: Other
  Country: DE (occurrence: DE)
  Receive Date: 20190604
  Receipt Date: 20250501
  Transmission Date: 20250716
  Serious: Yes (Hospitalization, Other)
  Sender: NOVA LABORATORIES LIMITED
  Company Number: DE-RARE DISEASE THERAPEUTICS, INC.-2067772

PATIENT
  Sex: Male

DRUGS (15)
  1. PURIXAN [Suspect]
     Active Substance: MERCAPTOPURINE
     Indication: Acute lymphocytic leukaemia
  2. CYTARABINE [Suspect]
     Active Substance: CYTARABINE
  3. SODIUM CHLORIDE [Suspect]
     Active Substance: SODIUM CHLORIDE
  4. LEUCOVORIN CALCIUM [Suspect]
     Active Substance: LEUCOVORIN CALCIUM
  5. ETOPOSIDE [Suspect]
     Active Substance: ETOPOSIDE
  6. VINDESINE [Suspect]
     Active Substance: VINDESINE
  7. MESNA [Suspect]
     Active Substance: MESNA
  8. PEGASPARGASE [Suspect]
     Active Substance: PEGASPARGASE
  9. RITUXIMAB [Suspect]
     Active Substance: RITUXIMAB
  10. DAUNORUBICIN [Suspect]
     Active Substance: DAUNORUBICIN
  11. CYCLOPHOSPHAMIDE [Suspect]
     Active Substance: CYCLOPHOSPHAMIDE
  12. METHOTREXATE [Suspect]
     Active Substance: METHOTREXATE
  13. VINCRISTINE [Suspect]
     Active Substance: VINCRISTINE
  14. DEXAMETHASONE [Suspect]
     Active Substance: DEXAMETHASONE
  15. GRANULOCYTE COLONY-STIMULATING FACTOR NOS [Suspect]
     Active Substance: GRANULOCYTE COLONY-STIMULATING FACTOR NOS

REACTIONS (3)
  - Low birth weight baby [Recovered/Resolved]
  - Foetal exposure during pregnancy [Unknown]
  - Premature baby [Recovered/Resolved]
